FAERS Safety Report 15460726 (Version 3)
Quarter: 2025Q4

REPORT INFORMATION
  Report Type: Spontaneous
  Country: EU (occurrence: EU)
  Receive Date: 20181003
  Receipt Date: 20251006
  Transmission Date: 20260117
  Serious: Yes (Life-Threatening, Other)
  Sender: MYLAN
  Company Number: EU-PHARMALEX-201800693

PATIENT
  Age: 63 Year
  Sex: Male

DRUGS (16)
  1. ETOPOSIDE [Suspect]
     Active Substance: ETOPOSIDE
     Indication: Rectal adenocarcinoma
     Dosage: UNK Q3 RECYCLES
  2. ETOPOSIDE [Suspect]
     Active Substance: ETOPOSIDE
     Indication: Mixed adenoneuroendocrine carcinoma
     Dosage: UNK Q3 RECYCLES
     Route: 065
  3. ETOPOSIDE [Suspect]
     Active Substance: ETOPOSIDE
     Dosage: UNK Q3 RECYCLES
     Route: 065
  4. ETOPOSIDE [Suspect]
     Active Substance: ETOPOSIDE
     Dosage: UNK Q3 RECYCLES
  5. CARBOPLATIN [Suspect]
     Active Substance: CARBOPLATIN
     Indication: Rectal adenocarcinoma
     Dosage: UNK,Q3CYCLES
  6. CARBOPLATIN [Suspect]
     Active Substance: CARBOPLATIN
     Indication: Mixed adenoneuroendocrine carcinoma
     Dosage: UNK,Q3CYCLES
     Route: 065
  7. CARBOPLATIN [Suspect]
     Active Substance: CARBOPLATIN
     Dosage: UNK,Q3CYCLES
     Route: 065
  8. CARBOPLATIN [Suspect]
     Active Substance: CARBOPLATIN
     Dosage: UNK,Q3CYCLES
  9. CAPECITABINE [Suspect]
     Active Substance: CAPECITABINE
     Indication: Mixed adenoneuroendocrine carcinoma
     Dosage: UNK
  10. CAPECITABINE [Suspect]
     Active Substance: CAPECITABINE
     Dosage: UNK
     Route: 065
  11. CAPECITABINE [Suspect]
     Active Substance: CAPECITABINE
     Dosage: UNK
     Route: 065
  12. CAPECITABINE [Suspect]
     Active Substance: CAPECITABINE
     Dosage: UNK
  13. OXALIPLATIN [Suspect]
     Active Substance: OXALIPLATIN
     Indication: Mixed adenoneuroendocrine carcinoma
     Dosage: UNK
  14. OXALIPLATIN [Suspect]
     Active Substance: OXALIPLATIN
     Dosage: UNK
     Route: 065
  15. OXALIPLATIN [Suspect]
     Active Substance: OXALIPLATIN
     Dosage: UNK
     Route: 065
  16. OXALIPLATIN [Suspect]
     Active Substance: OXALIPLATIN
     Dosage: UNK

REACTIONS (3)
  - Cerebral haemorrhage [Unknown]
  - Product use in unapproved indication [Unknown]
  - Neuropathy peripheral [Unknown]
